FAERS Safety Report 7574434-0 (Version None)
Quarter: 2011Q2

REPORT INFORMATION
  Report Type: 
  Country: None (occurrence: None)
  Receive Date: 20110627
  Receipt Date: 20110609
  Transmission Date: 20111010
  Serious: Yes (Other)
  Sender: FDA-Public Use
  Company Number: US-BAYER-2011-050581

PATIENT
  Sex: Female
  Weight: 70 kg

DRUGS (3)
  1. THYROID THERAPY [Concomitant]
  2. CAMPHO-PHENIQUE ANTISEPTIC LIQUID [Suspect]
     Indication: ARTHROPOD BITE
     Dosage: 1 DF, ONCE
     Route: 061
  3. TEGRETOL [Concomitant]

REACTIONS (2)
  - SINUSITIS [None]
  - NASAL OBSTRUCTION [None]
